FAERS Safety Report 9729979 (Version 2)
Quarter: 2013Q4

REPORT INFORMATION
  Report Type: Spontaneous
  Country: GB (occurrence: None)
  Receive Date: 20131203
  Receipt Date: 20131213
  Transmission Date: 20140711
  Serious: Yes (Hospitalization)
  Sender: FDA-Public Use
  Company Number: AUR-APL-2013-09545

PATIENT
  Age: 66 Year
  Sex: Female

DRUGS (6)
  1. BISOPROLOL [Suspect]
     Indication: PRODUCT USED FOR UNKNOWN INDICATION
  2. FLECAINIDE (FLECAINIDE) [Suspect]
     Indication: PRODUCT USED FOR UNKNOWN INDICATION
     Dosage: 300 MG (150 MG, 2 IN 1 D)
     Route: 048
     Dates: start: 201008
  3. WARFARIN (WARFARIN) [Concomitant]
  4. ASPIRIN (AETYLSALICYLIC ACID) [Concomitant]
  5. DRONEDARONE (DRONEDARONE) [Concomitant]
  6. PERINDOPRIL (PERINDOPRIL) [Concomitant]

REACTIONS (8)
  - Fall [None]
  - Head injury [None]
  - Loss of consciousness [None]
  - Ventricular tachycardia [None]
  - Cold sweat [None]
  - Atrial fibrillation [None]
  - Cerebral small vessel ischaemic disease [None]
  - Palpitations [None]
